FAERS Safety Report 21386472 (Version 2)
Quarter: 2022Q4

REPORT INFORMATION
  Report Type: Other
  Country: US (occurrence: None)
  Receive Date: 20220928
  Receipt Date: 20221008
  Transmission Date: 20230112
  Serious: No
  Sender: FDA-Public Use
  Company Number: US-ROCHE-3187264

PATIENT
  Sex: Male
  Weight: 110.2 kg

DRUGS (15)
  1. OCREVUS [Suspect]
     Active Substance: OCRELIZUMAB
     Indication: Multiple sclerosis
     Route: 042
  2. ADDERALL [Concomitant]
     Active Substance: AMPHETAMINE ASPARTATE\AMPHETAMINE SULFATE\DEXTROAMPHETAMINE SACCHARATE\DEXTROAMPHETAMINE SULFATE
     Route: 048
  3. OXYCODONE [Concomitant]
     Active Substance: OXYCODONE
     Indication: Pain
     Route: 048
  4. VENLAFAXINE [Concomitant]
     Active Substance: VENLAFAXINE HYDROCHLORIDE
     Route: 048
  5. DICLOFENAC [Concomitant]
     Active Substance: DICLOFENAC
  6. GABAPENTIN [Concomitant]
     Active Substance: GABAPENTIN
     Route: 048
  7. LITHIUM CARBONATE [Concomitant]
     Active Substance: LITHIUM CARBONATE
  8. FUROSEMIDE [Concomitant]
     Active Substance: FUROSEMIDE
     Route: 048
  9. PANTOPRAZOLE [Concomitant]
     Active Substance: PANTOPRAZOLE
     Route: 048
  10. DICLOFENAC SODIUM [Concomitant]
     Active Substance: DICLOFENAC SODIUM
     Route: 048
  11. APIXABAN [Concomitant]
     Active Substance: APIXABAN
     Route: 048
  12. ARIPIPRAZOLE [Concomitant]
     Active Substance: ARIPIPRAZOLE
  13. VIAGRA [Concomitant]
     Active Substance: SILDENAFIL CITRATE
  14. VISTARIL [Concomitant]
     Active Substance: HYDROXYZINE PAMOATE
  15. ZANAFLEX [Concomitant]
     Active Substance: TIZANIDINE HYDROCHLORIDE

REACTIONS (8)
  - COVID-19 [Unknown]
  - Pain [Unknown]
  - Off label use [Unknown]
  - Off label use [Unknown]
  - Asthenia [Unknown]
  - Malaise [Unknown]
  - Anxiety [Unknown]
  - Erythromelalgia [Unknown]

NARRATIVE: CASE EVENT DATE: 20220601
